FAERS Safety Report 5188201-9 (Version None)
Quarter: 2006Q4

REPORT INFORMATION
  Report Type: 
  Country: None (occurrence: None)
  Receive Date: 20061221
  Receipt Date: 20061128
  Transmission Date: 20070319
  Serious: Yes (Other)
  Sender: FDA-Public Use
  Company Number: JP-ROCHE-472842

PATIENT
  Age: 67 Year
  Sex: Male

DRUGS (1)
  1. INTERFERON ALFA [Suspect]
     Route: 065
     Dates: start: 19931201

REACTIONS (4)
  - ANGIOTENSIN CONVERTING ENZYME INCREASED [None]
  - DISEASE RECURRENCE [None]
  - PAROTID GLAND ENLARGEMENT [None]
  - SARCOIDOSIS [None]
